FAERS Safety Report 8939272 (Version 1)
Quarter: 2012Q4

REPORT INFORMATION
  Report Type: 
  Country: ZA (occurrence: ZA)
  Receive Date: 20121203
  Receipt Date: 20121203
  Transmission Date: 20130627
  Serious: Yes (Other)
  Sender: FDA-Public Use
  Company Number: ZA-NOVOPROD-359236

PATIENT
  Age: 25 Year
  Sex: Female
  Weight: 78 kg

DRUGS (2)
  1. NOVOMIX 30 FLEXPEN [Suspect]
     Indication: GESTATIONAL DIABETES
     Dosage: 20 IU, qd
     Route: 065
     Dates: start: 20120807, end: 20121030
  2. PREGNAVITE [Concomitant]
     Dosage: UNK
     Route: 048

REACTIONS (2)
  - Amniotic fluid volume decreased [Recovered/Resolved]
  - Exposure during pregnancy [Unknown]
